FAERS Safety Report 9892054 (Version 1)
Quarter: 2014Q1

REPORT INFORMATION
  Report Type: Spontaneous
  Country: GB (occurrence: GB)
  Receive Date: 20140212
  Receipt Date: 20140212
  Transmission Date: 20141002
  Serious: Yes (Other)
  Sender: FDA-Public Use
  Company Number: GB-ABBVIE-14P-167-1199078-00

PATIENT
  Age: 33 Year
  Sex: Female

DRUGS (4)
  1. SODIUM VALPROATE [Suspect]
     Indication: BIPOLAR DISORDER
     Dates: start: 2011
  2. SODIUM VALPROATE [Suspect]
     Dates: end: 2013
  3. VENLAFAXINE [Suspect]
     Indication: BIPOLAR DISORDER
     Dates: start: 2010, end: 2014
  4. ZINC [Concomitant]
     Indication: PRODUCT USED FOR UNKNOWN INDICATION

REACTIONS (6)
  - Mental disorder [Recovered/Resolved]
  - Anxiety [Recovered/Resolved]
  - Weight increased [Recovered/Resolved]
  - Amenorrhoea [Recovered/Resolved]
  - Syncope [Recovered/Resolved]
  - Malaise [Recovered/Resolved]
